FAERS Safety Report 10391955 (Version 1)
Quarter: 2014Q3

REPORT INFORMATION
  Report Type: Spontaneous
  Country: US (occurrence: US)
  Receive Date: 20140819
  Receipt Date: 20140819
  Transmission Date: 20150326
  Serious: Yes (Death)
  Sender: FDA-Public Use
  Company Number: PHHY2014US099612

PATIENT
  Age: 47 Year
  Sex: Female

DRUGS (5)
  1. IMMUNOGLOBULIN I.V [Suspect]
     Active Substance: HUMAN IMMUNOGLOBULIN G
  2. CICLOSPORIN [Suspect]
     Active Substance: CYCLOSPORINE
  3. AZATHIOPRINE. [Suspect]
     Active Substance: AZATHIOPRINE
  4. TACROLIMUS. [Suspect]
     Active Substance: TACROLIMUS
  5. CORTICOSTEROIDS [Suspect]
     Active Substance: CORTICOSTEROID NOS

REACTIONS (5)
  - Malabsorption [Fatal]
  - Cachexia [Fatal]
  - Drug ineffective [Unknown]
  - Pneumonia [Fatal]
  - Diarrhoea [Unknown]
